FAERS Safety Report 23486851 (Version 1)
Quarter: 2024Q1

REPORT INFORMATION
  Report Type: Report from Study
  Country: US (occurrence: US)
  Receive Date: 20240206
  Receipt Date: 20240206
  Transmission Date: 20240410
  Serious: No
  Sender: FDA-Public Use
  Company Number: US-ORG100014127-2023000406

PATIENT
  Age: 61 Year
  Sex: Male

DRUGS (6)
  1. LYSODREN [Suspect]
     Active Substance: MITOTANE
     Indication: Adrenal gland cancer
     Dosage: 1 TABLET (500 MG) BY MOUTH TWO TIMES DAILY FOR 7 DAYS
     Route: 048
     Dates: start: 20230106
  2. LYSODREN [Suspect]
     Active Substance: MITOTANE
     Indication: Adrenal gland cancer
     Dosage: 2 TABLETS (1000 MG) TWO TIMES DAILY FOR 7 DAYS
  3. Iron tablet 18 mg [Concomitant]
     Indication: Product used for unknown indication
  4. Nasal spray mist pump [Concomitant]
     Indication: Product used for unknown indication
  5. Simvastatin Tablet 80 mg [Concomitant]
     Indication: Product used for unknown indication
  6. Tylenol Tablet 500 mg [Concomitant]
     Indication: Product used for unknown indication

REACTIONS (3)
  - Myalgia [Not Recovered/Not Resolved]
  - Abdominal discomfort [Not Recovered/Not Resolved]
  - Fatigue [Not Recovered/Not Resolved]

NARRATIVE: CASE EVENT DATE: 20230315
